FAERS Safety Report 7932442-1 (Version None)
Quarter: 2011Q4

REPORT INFORMATION
  Report Type: 
  Country: None (occurrence: None)
  Receive Date: 20111122
  Receipt Date: 20111115
  Transmission Date: 20120403
  Serious: Yes (Hospitalization)
  Sender: FDA-Public Use
  Company Number: US-BIOGENIDEC-2011BI043739

PATIENT
  Age: 69 Year
  Sex: Male

DRUGS (1)
  1. AVONEX [Suspect]
     Indication: MULTIPLE SCLEROSIS
     Route: 030
     Dates: start: 20100922, end: 20111014

REACTIONS (8)
  - DEPRESSION [None]
  - ASTHENIA [None]
  - DIVERTICULUM INTESTINAL HAEMORRHAGIC [None]
  - WEIGHT DECREASED [None]
  - TRANSIENT ISCHAEMIC ATTACK [None]
  - INTESTINAL PERFORATION [None]
  - DECREASED APPETITE [None]
  - PNEUMONIA [None]
